FAERS Safety Report 12701952 (Version 1)
Quarter: 2016Q3

REPORT INFORMATION
  Report Type: Spontaneous
  Country: US (occurrence: None)
  Receive Date: 20160830
  Receipt Date: 20160830
  Transmission Date: 20161109
  Serious: Yes (Disabling)
  Sender: FDA-Public Use
  Company Number: None

PATIENT
  Age: 69 Year
  Sex: Male
  Weight: 115 kg

DRUGS (1)
  1. RIVAROXABAN 20MG BAYER AG [Suspect]
     Active Substance: RIVAROXABAN
     Indication: ATRIAL FIBRILLATION
     Route: 048
     Dates: start: 20160629, end: 20160728

REACTIONS (2)
  - Choroidal haemorrhage [None]
  - Vitreous haemorrhage [None]

NARRATIVE: CASE EVENT DATE: 20160728
